FAERS Safety Report 7387381-4 (Version None)
Quarter: 2011Q1

REPORT INFORMATION
  Report Type: 
  Country: None (occurrence: None)
  Receive Date: 20110331
  Receipt Date: 20110317
  Transmission Date: 20110831
  Serious: Yes (Hospitalization)
  Sender: FDA-Public Use
  Company Number: PHHO2011FR04909

PATIENT
  Sex: Male

DRUGS (4)
  1. MYCOPHENOLIC ACID [Suspect]
     Dosage: UNK
     Route: 048
     Dates: start: 20110227
  2. MYCOPHENOLIC ACID [Suspect]
     Indication: RENAL TRANSPLANT
     Dosage: 720 MG, PRN
     Route: 048
     Dates: start: 20101125, end: 20110226
  3. NEORAL [Suspect]
     Indication: RENAL TRANSPLANT
     Dosage: UNK
     Route: 048
     Dates: start: 20101124
  4. ROVALCYTE [Suspect]

REACTIONS (1)
  - AGRANULOCYTOSIS [None]
